FAERS Safety Report 8962648 (Version 4)
Quarter: 2013Q1

REPORT INFORMATION
  Report Type: Spontaneous
  Country: JP (occurrence: JP)
  Receive Date: 20121213
  Receipt Date: 20130208
  Transmission Date: 20140127
  Serious: Yes (Hospitalization, Other)
  Sender: FDA-Public Use
  Company Number: JP-ALLERGAN-1216874US

PATIENT
  Age: 68 Year
  Sex: Male

DRUGS (18)
  1. BOTOX [Suspect]
     Indication: MUSCLE SPASMS
     Dosage: 240 UNITS, SINGLE
     Route: 030
     Dates: start: 20121108, end: 20121108
  2. PLAVIX [Concomitant]
     Indication: THROMBOSIS
     Dosage: 75 MG, QD
     Route: 048
     Dates: start: 20090616
  3. AMLODIN [Concomitant]
     Indication: HYPERTENSION
     Dosage: 05 MG, QD
     Route: 048
     Dates: start: 20090728
  4. ADALAT CR [Concomitant]
     Indication: HYPERTENSION
     Dosage: 20 MG, QD
     Route: 048
  5. ADALAT CR [Concomitant]
     Dosage: 40 MG, QD
     Route: 048
  6. CARDENALIN [Concomitant]
     Dosage: 2 MG, QD
     Route: 048
  7. AVAPRO [Concomitant]
     Dosage: 100 MG, QD
     Route: 048
     Dates: start: 20101005
  8. YODEL-S [Concomitant]
     Dosage: 160 MG, QD
     Route: 048
     Dates: start: 20090714
  9. CHINESE MEDICINE [Concomitant]
     Dosage: 5.0 G, QD
     Dates: start: 20090714
  10. PLETAAL [Concomitant]
     Indication: PRODUCT USED FOR UNKNOWN INDICATION
     Dosage: 100 MG, QD
     Dates: start: 20090714
  11. MOHRUS TAPE [Concomitant]
     Indication: PRODUCT USED FOR UNKNOWN INDICATION
     Dosage: 40 MG, UNK
     Route: 061
  12. MUCODYNE [Concomitant]
     Indication: PRODUCT USED FOR UNKNOWN INDICATION
     Dosage: 3 G, QD
     Route: 048
     Dates: start: 20110802
  13. ARGAMATE [Concomitant]
     Indication: PRODUCT USED FOR UNKNOWN INDICATION
     Dosage: 25 G, QD
     Route: 048
     Dates: start: 20080418
  14. FOSRENOL [Concomitant]
     Indication: PRODUCT USED FOR UNKNOWN INDICATION
     Dosage: 250 MG, QD
     Route: 048
     Dates: start: 20100817
  15. MICARDIS [Concomitant]
     Indication: PRODUCT USED FOR UNKNOWN INDICATION
     Dosage: 40 MG, QD
     Route: 048
     Dates: start: 20091215
  16. ADALAT L [Concomitant]
     Indication: PRODUCT USED FOR UNKNOWN INDICATION
     Dosage: 20 MG, QD
     Dates: start: 20090813
  17. MUNOBAL [Concomitant]
     Indication: PRODUCT USED FOR UNKNOWN INDICATION
     Dosage: 5 MG, QD
     Route: 048
     Dates: start: 20120918
  18. LAXOBERON [Concomitant]
     Indication: CONSTIPATION
     Dosage: 30 ML, QD
     Route: 048

REACTIONS (6)
  - Hepatic function abnormal [Recovering/Resolving]
  - Disseminated intravascular coagulation [Recovered/Resolved]
  - Anaemia [Recovered/Resolved]
  - Hypoglycaemia [Recovering/Resolving]
  - Decreased appetite [Unknown]
  - Bradykinesia [Unknown]
